FAERS Safety Report 18258965 (Version 1)
Quarter: 2020Q3

REPORT INFORMATION
  Report Type: Report from Study
  Country: CA (occurrence: CA)
  Receive Date: 20200911
  Receipt Date: 20200911
  Transmission Date: 20201103
  Serious: Yes (Other)
  Sender: FDA-Public Use
  Company Number: CA-JNJFOC-20191242424

PATIENT
  Age: 13 Year
  Sex: Female
  Weight: 41.2 kg

DRUGS (7)
  1. REMICADE [Suspect]
     Active Substance: INFLIXIMAB
     Dosage: ON 14?MAY?2020, THE PATIENT RECEIVED 15TH 442 MG INFLIXIMAB INFUSION AND PARTIAL MAYO COMPLETED.
     Route: 042
     Dates: start: 20200514
  2. REMICADE [Suspect]
     Active Substance: INFLIXIMAB
     Indication: COLITIS ULCERATIVE
     Dosage: ON 23?DEC?2019, PATIENT RECEIVED 11TH INFUSION OF 412 MILLIGRAM OF INFLIXIMAB RECOMBINANT.
     Route: 042
     Dates: start: 20110316
  3. REMICADE [Suspect]
     Active Substance: INFLIXIMAB
     Dosage: LAST INFUSION RECEIVED ON 20?JAN?2020
     Route: 042
     Dates: start: 20191125
  4. PREDNISONE. [Concomitant]
     Active Substance: PREDNISONE
     Indication: COLITIS ULCERATIVE
     Route: 048
  5. CALCIUM W/COLECALCIFEROL [Concomitant]
     Active Substance: CALCIUM\CHOLECALCIFEROL
     Indication: PRODUCT USED FOR UNKNOWN INDICATION
     Route: 048
  6. VITAMINE D [Concomitant]
     Active Substance: CHOLECALCIFEROL
     Indication: PRODUCT USED FOR UNKNOWN INDICATION
     Route: 065
  7. REMICADE [Suspect]
     Active Substance: INFLIXIMAB
     Route: 042
     Dates: start: 20200416

REACTIONS (5)
  - Fatigue [Recovered/Resolved]
  - Therapeutic product effect decreased [Unknown]
  - Off label use [Unknown]
  - Colitis ulcerative [Not Recovered/Not Resolved]
  - Product use issue [Unknown]

NARRATIVE: CASE EVENT DATE: 20110316
